FAERS Safety Report 8854217 (Version 1)
Quarter: 2012Q4

REPORT INFORMATION
  Report Type: 
  Country: DE (occurrence: DE)
  Receive Date: 20121022
  Receipt Date: 20121022
  Transmission Date: 20130627
  Serious: Yes (Other)
  Sender: FDA-Public Use
  Company Number: PHHY2012DE093813

PATIENT
  Age: 64 Year
  Sex: Female

DRUGS (6)
  1. RASILEZ [Suspect]
     Indication: HYPERTENSION
     Dosage: 150 mg, daily
     Route: 048
     Dates: start: 2011
  2. DIOVAN [Suspect]
     Indication: HYPERTENSION
     Dosage: 320 mg, QD
     Route: 048
     Dates: start: 2011
  3. BELOC-ZOK [Concomitant]
     Dosage: 0.5 DF, QD
     Route: 048
     Dates: start: 2002
  4. CORDAREX [Concomitant]
     Dosage: 1 DF, QD
     Route: 048
     Dates: start: 2002
  5. TAVOR (LORAZEPAM) [Concomitant]
     Indication: ANXIETY
     Dosage: 1 DF, BID
     Route: 048
  6. HCT [Concomitant]
     Dosage: 1 DF, QD
     Route: 048

REACTIONS (3)
  - Dyspnoea exertional [Unknown]
  - Dyspnoea at rest [Unknown]
  - Breast discomfort [Unknown]
